FAERS Safety Report 4637599-6 (Version None)
Quarter: 2005Q2

REPORT INFORMATION
  Report Type: 
  Country: None (occurrence: None)
  Receive Date: 20050325
  Receipt Date: 20050120
  Transmission Date: 20051028
  Serious: No
  Sender: FDA-Public Use
  Company Number: USA040361374

PATIENT
  Age: 74 Year
  Sex: Female
  Weight: 51 kg

DRUGS (11)
  1. FORTEO [Suspect]
     Indication: OSTEOPOROSIS
     Dosage: 20 UG/1 DAY
     Dates: start: 20040225
  2. CALCIUM WITH VITAMIN D [Concomitant]
  3. COUMADIN [Concomitant]
  4. SYNTHROID [Concomitant]
  5. COZAAR [Concomitant]
  6. MULTI-VITAMIN [Concomitant]
  7. ADVIL [Concomitant]
  8. PAMELOR [Concomitant]
  9. ZOCOR [Concomitant]
  10. CITRACAL (CALCIUM CITRATE) [Concomitant]
  11. FLORICAL [Concomitant]

REACTIONS (13)
  - ARTHRALGIA [None]
  - BACK PAIN [None]
  - BLOOD PRESSURE INCREASED [None]
  - BONE DENSITY DECREASED [None]
  - BONE PAIN [None]
  - GANGLION [None]
  - GOUT [None]
  - HYPOAESTHESIA [None]
  - JOINT SWELLING [None]
  - MUSCLE SPASMS [None]
  - NAUSEA [None]
  - SKIN DISORDER [None]
  - WEIGHT DECREASED [None]
